FAERS Safety Report 7461391-0 (Version None)
Quarter: 2011Q2

REPORT INFORMATION
  Report Type: 
  Country: None (occurrence: None)
  Receive Date: 20110506
  Receipt Date: 20110425
  Transmission Date: 20111010
  Serious: Yes (Death)
  Sender: FDA-Public Use
  Company Number: US-CELGENEUS-163-21880-11043233

PATIENT
  Sex: Female
  Weight: 66.057 kg

DRUGS (10)
  1. FAMOTIDINE [Concomitant]
     Route: 065
  2. AREDIA [Concomitant]
     Route: 051
     Dates: start: 20080201, end: 20100701
  3. MORPHINE [Concomitant]
     Route: 065
  4. GABAPENTIN [Concomitant]
     Route: 065
  5. PERCOCET [Concomitant]
     Route: 065
  6. FERROUS SULFATE TAB [Concomitant]
     Route: 065
  7. ONDANSETRON [Concomitant]
     Route: 065
  8. REVLIMID [Suspect]
     Indication: MULTIPLE MYELOMA
     Dosage: 25 MILLIGRAM
     Route: 048
     Dates: start: 20080301, end: 20100901
  9. AMITRIPTYLINE [Concomitant]
     Route: 065
  10. DEXAMETHASONE [Concomitant]
     Route: 065
     Dates: start: 20080301

REACTIONS (4)
  - PLATELET COUNT DECREASED [None]
  - NEUTROPHIL COUNT DECREASED [None]
  - DEATH [None]
  - MULTIPLE MYELOMA [None]
